FAERS Safety Report 7829463-6 (Version None)
Quarter: 2011Q4

REPORT INFORMATION
  Report Type: 
  Country: None (occurrence: None)
  Receive Date: 20111020
  Receipt Date: 20111012
  Transmission Date: 20120403
  Serious: Yes (Death, Hospitalization)
  Sender: FDA-Public Use
  Company Number: JP-AMGEN-JPNCT2011008657

PATIENT
  Age: 66 Year
  Sex: Male
  Weight: 50 kg

DRUGS (7)
  1. MAGMITT [Concomitant]
     Dosage: 250 MG, TID
     Route: 048
  2. PANITUMUMAB [Suspect]
     Indication: COLORECTAL CANCER
     Dosage: 6 MG/KG, Q2WK
     Route: 041
     Dates: start: 20101115, end: 20101221
  3. OMEPRAZOLE [Concomitant]
     Dosage: 20 MG, QD
     Route: 048
  4. RIZE [Concomitant]
     Dosage: 5 MG, QD
     Route: 048
  5. NITRAZEPAM [Concomitant]
     Dosage: 5 MG, QD
     Route: 048
  6. METHYCOBAL [Concomitant]
     Dosage: 500 MUG, TID
     Route: 048
  7. LOXONIN [Concomitant]
     Dosage: 60 MG, TID
     Route: 048

REACTIONS (5)
  - PLATELET COUNT DECREASED [None]
  - NEUTROPENIC INFECTION [None]
  - WHITE BLOOD CELL COUNT DECREASED [None]
  - COLORECTAL CANCER [None]
  - PARONYCHIA [None]
